FAERS Safety Report 8834335 (Version 1)
Quarter: 2012Q4

REPORT INFORMATION
  Report Type: Report from Study
  Country: US (occurrence: US)
  Receive Date: 20121010
  Receipt Date: 20121010
  Transmission Date: 20130627
  Serious: Yes (Hospitalization)
  Sender: FDA-Public Use
  Company Number: US-ABBOTT-12P-163-0991794-00

PATIENT
  Sex: Female

DRUGS (11)
  1. HUMIRA [Suspect]
     Indication: PRODUCT USED FOR UNKNOWN INDICATION
     Dates: start: 200910, end: 2011
  2. DEXILANT [Concomitant]
     Indication: PRODUCT USED FOR UNKNOWN INDICATION
  3. TYLENOL [Concomitant]
     Indication: PRODUCT USED FOR UNKNOWN INDICATION
  4. WARFARIN [Concomitant]
     Indication: PRODUCT USED FOR UNKNOWN INDICATION
  5. VICODIN [Concomitant]
     Indication: PRODUCT USED FOR UNKNOWN INDICATION
  6. VITAMIN B 12 [Concomitant]
     Indication: PRODUCT USED FOR UNKNOWN INDICATION
  7. CHOLESTIN [Concomitant]
     Indication: PRODUCT USED FOR UNKNOWN INDICATION
  8. DEGERID [Concomitant]
     Indication: PRODUCT USED FOR UNKNOWN INDICATION
  9. CYMBALTA [Concomitant]
     Indication: PRODUCT USED FOR UNKNOWN INDICATION
  10. CELEBREX [Concomitant]
     Indication: PRODUCT USED FOR UNKNOWN INDICATION
  11. LOPERAMIDE [Concomitant]
     Indication: PRODUCT USED FOR UNKNOWN INDICATION

REACTIONS (9)
  - Abdominal distension [Recovered/Resolved]
  - Erythema [Recovered/Resolved]
  - Skin induration [Recovered/Resolved]
  - Dermatitis [Recovered/Resolved]
  - Umbilical hernia [Recovered/Resolved]
  - Abdominal pain upper [Recovered/Resolved]
  - Abdominal abscess [Recovered/Resolved]
  - Abscess [Recovered/Resolved]
  - Purulent discharge [Recovered/Resolved]
